FAERS Safety Report 13699314 (Version 5)
Quarter: 2017Q3

REPORT INFORMATION
  Report Type: Report from Study
  Country: US (occurrence: US)
  Receive Date: 20170628
  Receipt Date: 20170808
  Transmission Date: 20171127
  Serious: Yes (Hospitalization, Other)
  Sender: FDA-Public Use
  Company Number: US-ACTELION-A-US2017-155832

PATIENT
  Age: 70 Year
  Sex: Male
  Weight: 79.37 kg

DRUGS (5)
  1. UPTRAVI [Suspect]
     Active Substance: SELEXIPAG
     Dosage: 600 MCG, BID
     Route: 048
  2. DILTIAZEM. [Concomitant]
     Active Substance: DILTIAZEM
  3. AMLODIPINE [Concomitant]
     Active Substance: AMLODIPINE BESYLATE
  4. LETAIRIS [Concomitant]
     Active Substance: AMBRISENTAN
  5. UPTRAVI [Suspect]
     Active Substance: SELEXIPAG
     Indication: PULMONARY ARTERIAL HYPERTENSION
     Dosage: 200 MCG, BID
     Route: 048

REACTIONS (14)
  - Dialysis [Unknown]
  - Mechanical ventilation [Unknown]
  - Cough [Unknown]
  - Gait disturbance [Unknown]
  - Cancer surgery [Unknown]
  - Helicobacter infection [Unknown]
  - Device dislocation [Unknown]
  - Deafness [Unknown]
  - Malignant polyp [Unknown]
  - Gastrointestinal haemorrhage [Unknown]
  - Terminal state [Unknown]
  - Tracheostomy [Unknown]
  - Anaemia [Unknown]
  - Transfusion [Unknown]

NARRATIVE: CASE EVENT DATE: 201706
